FAERS Safety Report 9241009 (Version 1)
Quarter: 2013Q2

REPORT INFORMATION
  Report Type: Spontaneous
  Country: US (occurrence: None)
  Receive Date: 20130418
  Receipt Date: 20130418
  Transmission Date: 20140414
  Serious: No
  Sender: FDA-Public Use
  Company Number: None

PATIENT
  Age: 23 Year
  Sex: Male
  Weight: 63.5 kg

DRUGS (2)
  1. LAMOTRIGINE [Suspect]
     Indication: MOOD SWINGS
     Dosage: (1)  150MG TAB #60 (1) TAB TWICE DAILY BY MOUTH 047
     Route: 048
     Dates: start: 20120921, end: 20121010
  2. LAMOTRIGINE [Suspect]
     Indication: ANXIETY
     Dosage: (1)  150MG TAB #60 (1) TAB TWICE DAILY BY MOUTH 047
     Route: 048
     Dates: start: 20120921, end: 20121010

REACTIONS (2)
  - Product label issue [None]
  - Product packaging issue [None]
